FAERS Safety Report 13635642 (Version 1)
Quarter: 2017Q2

REPORT INFORMATION
  Report Type: Spontaneous
  Country: US (occurrence: US)
  Receive Date: 20170609
  Receipt Date: 20170609
  Transmission Date: 20170830
  Serious: Yes (Other)
  Sender: FDA-Public Use
  Company Number: US-ALKABELLO-2017AA001891

PATIENT
  Age: 30 Year
  Sex: Male

DRUGS (1)
  1. RAGWITEK [Suspect]
     Active Substance: AMBROSIA ARTEMISIIFOLIA POLLEN

REACTIONS (4)
  - Throat irritation [Recovered/Resolved]
  - Flushing [Recovered/Resolved]
  - Throat tightness [Recovered/Resolved]
  - Tongue pruritus [Recovered/Resolved]

NARRATIVE: CASE EVENT DATE: 20170522
